FAERS Safety Report 9558392 (Version 3)
Quarter: 2013Q4

REPORT INFORMATION
  Report Type: Report from Study
  Country: AU (occurrence: AU)
  Receive Date: 20130926
  Receipt Date: 20131101
  Transmission Date: 20140711
  Serious: Yes (Hospitalization)
  Sender: FDA-Public Use
  Company Number: AU-ABBVIE-13P-008-1148508-00

PATIENT
  Age: 38 Year
  Sex: Female
  Weight: 78 kg

DRUGS (32)
  1. HUMIRA [Suspect]
     Indication: SPONDYLITIS
     Route: 058
     Dates: start: 20110512, end: 20130912
  2. PANADOL OSTEO [Concomitant]
     Indication: SPONDYLITIS
     Dates: start: 2008
  3. PANADOL OSTEO [Concomitant]
     Indication: PAIN
  4. PANADOL OSTEO [Concomitant]
     Indication: PAIN
  5. PREDNISOLONE [Concomitant]
     Indication: DIARRHOEA
     Dates: start: 20110301, end: 20110318
  6. PREDNISOLONE [Concomitant]
     Indication: DIARRHOEA
     Dates: start: 20110519, end: 20110522
  7. PREDNISOLONE [Concomitant]
     Indication: SPONDYLITIS
     Dates: start: 20110523, end: 20110602
  8. PREDNISOLONE [Concomitant]
     Indication: GASTROENTERITIS
     Dates: start: 20110603, end: 20110604
  9. PREDNISOLONE [Concomitant]
     Dates: start: 20110605, end: 20120823
  10. PREDNISOLONE [Concomitant]
     Dates: start: 20120823, end: 20120826
  11. PREDNISOLONE [Concomitant]
     Dates: start: 20120827, end: 20121222
  12. PREDNISOLONE [Concomitant]
     Dates: start: 20121220, end: 20121227
  13. PREDNISOLONE [Concomitant]
     Dates: start: 20121227
  14. PREDNISOLONE [Concomitant]
     Dates: start: 20130711, end: 20130714
  15. PREDNISOLONE [Concomitant]
     Dates: start: 20130815, end: 20130815
  16. SULPHASALAZINE [Concomitant]
     Indication: SPONDYLITIS
     Dates: start: 20110301
  17. TRAMAL [Concomitant]
     Indication: SPONDYLITIS
     Dates: start: 2010
  18. MOBIC [Concomitant]
     Indication: SPONDYLITIS
     Dates: start: 20110310
  19. IMPLANON [Concomitant]
     Indication: CONTRACEPTION
     Route: 058
     Dates: start: 20050406
  20. DICLOFENAC [Concomitant]
     Indication: HEADACHE
     Dates: start: 20120819
  21. DICLOFENAC [Concomitant]
     Indication: MUSCULOSKELETAL STIFFNESS
  22. DICLOFENAC [Concomitant]
     Indication: SPONDYLITIS
  23. ENDONE [Concomitant]
     Indication: HEADACHE
     Dates: start: 20120817, end: 20120819
  24. ENDONE [Concomitant]
     Indication: MUSCULOSKELETAL STIFFNESS
     Dates: start: 20130815
  25. ENDONE [Concomitant]
     Indication: SPONDYLITIS
  26. PANADEINE [Concomitant]
     Indication: SPONDYLITIS
     Dates: start: 20130808
  27. TRAMADOL [Concomitant]
     Indication: SPONDYLITIS
     Dates: start: 20130815
  28. METHOTREXATE [Concomitant]
     Indication: SPONDYLITIS
     Dates: start: 20130816
  29. PREGABALIN [Concomitant]
     Indication: SPONDYLITIS
     Dates: start: 20130815, end: 20130815
  30. PREGABALIN [Concomitant]
     Dates: start: 20130817, end: 20130818
  31. PREGABALIN [Concomitant]
     Dates: start: 20130818
  32. FOLATE [Concomitant]
     Indication: BLOOD IRON ABNORMAL
     Dates: start: 20130819

REACTIONS (1)
  - Peripheral arterial occlusive disease [Not Recovered/Not Resolved]
